FAERS Safety Report 25595364 (Version 1)
Quarter: 2025Q3

REPORT INFORMATION
  Report Type: Report from Study
  Country: CA (occurrence: CA)
  Receive Date: 20250723
  Receipt Date: 20250723
  Transmission Date: 20251020
  Serious: Yes (Hospitalization, Other)
  Sender: NOVARTIS
  Company Number: CA-002147023-NVSC2025CA114881

PATIENT
  Age: 34 Year
  Sex: Female

DRUGS (1)
  1. KISQALI [Suspect]
     Active Substance: RIBOCICLIB SUCCINATE
     Indication: Breast cancer metastatic
     Dosage: 600 MG, QD
     Route: 048
     Dates: start: 20250617

REACTIONS (4)
  - Dyspnoea [Recovered/Resolved]
  - Pulmonary embolism [Unknown]
  - Concomitant disease aggravated [Unknown]
  - Pulmonary oedema [Unknown]
